FAERS Safety Report 8575711-7 (Version None)
Quarter: 2012Q3

REPORT INFORMATION
  Report Type: 
  Country: None (occurrence: None)
  Receive Date: 20120807
  Receipt Date: 20120803
  Transmission Date: 20120928
  Serious: Yes (Hospitalization, Other)
  Sender: FDA-Public Use
  Company Number: PHHY2010CA61979

PATIENT
  Sex: Female

DRUGS (7)
  1. SANDOSTATIN [Suspect]
     Indication: CROHN'S DISEASE
     Dosage: 100 UG, BID
     Route: 058
     Dates: start: 20100101
  2. SANDOSTATIN LAR [Suspect]
     Indication: CROHN'S DISEASE
     Dosage: 30 MG, ONCE A MONTH
     Route: 030
     Dates: start: 20100729, end: 20100831
  3. SANDOSTATIN LAR [Suspect]
     Dosage: 40 MG, EVERY 4 WEEKS
     Route: 030
     Dates: start: 20101018
  4. SANDOSTATIN LAR [Suspect]
     Dosage: 30 MG, TIW
     Route: 030
  5. SANDOSTATIN [Suspect]
     Dosage: 100 UG, BID
     Route: 058
     Dates: start: 20100201
  6. SANDOSTATIN LAR [Suspect]
     Dosage: 30 MG, TIW
     Route: 030
  7. SANDOSTATIN LAR [Suspect]
     Dosage: 20 MG, TIW
     Route: 030

REACTIONS (10)
  - DEHYDRATION [None]
  - IATROGENIC INJURY [None]
  - INTESTINAL OBSTRUCTION [None]
  - LARGE INTESTINE PERFORATION [None]
  - FOOT FRACTURE [None]
  - DIARRHOEA [None]
  - BLOOD PRESSURE DECREASED [None]
  - URINARY TRACT INFECTION [None]
  - DRUG INEFFECTIVE [None]
  - POSTOPERATIVE WOUND INFECTION [None]
